FAERS Safety Report 5955626-0 (Version None)
Quarter: 2008Q4

REPORT INFORMATION
  Report Type: 
  Country: None (occurrence: None)
  Receive Date: 20081117
  Receipt Date: 20081112
  Transmission Date: 20090506
  Serious: Yes (Other)
  Sender: FDA-Public Use
  Company Number: CH-RB-005586-08

PATIENT
  Age: 38 Year
  Sex: Male

DRUGS (4)
  1. SUBUTEX [Suspect]
     Route: 060
     Dates: start: 20071127, end: 20071205
  2. SUBUTEX [Suspect]
     Route: 060
     Dates: start: 20071120, end: 20071126
  3. NOZINAN [Suspect]
     Route: 048
     Dates: start: 20071128, end: 20071130
  4. CITALOPRAM HYDROBROMIDE [Concomitant]
     Indication: DRUG USE FOR UNKNOWN INDICATION
     Dosage: DOSING INFORMATION UNKNOWN.
     Route: 065
     Dates: start: 20071029

REACTIONS (1)
  - OEDEMA PERIPHERAL [None]
